FAERS Safety Report 11539766 (Version 5)
Quarter: 2015Q4

REPORT INFORMATION
  Report Type: Spontaneous
  Country: GB (occurrence: GB)
  Receive Date: 20150923
  Receipt Date: 20151218
  Transmission Date: 20160304
  Serious: Yes (Hospitalization, Other)
  Sender: FDA-Public Use
  Company Number: GB-AMGEN-GBRSP2015097770

PATIENT
  Age: 84 Year
  Sex: Male
  Weight: 65 kg

DRUGS (6)
  1. ROSUVASTATIN [Concomitant]
     Active Substance: ROSUVASTATIN
     Dosage: 5 MG, UNK
     Route: 048
  2. ASPIRIN                            /00002701/ [Concomitant]
     Active Substance: ASPIRIN
     Dosage: 75 MG, QD
     Route: 048
  3. METOPROLOL [Concomitant]
     Active Substance: METOPROLOL
     Dosage: 50 MG, BID
  4. SODIUM BICARBONATE. [Concomitant]
     Active Substance: SODIUM BICARBONATE
     Dosage: 500 MG, TID
  5. CALCITRIOL. [Concomitant]
     Active Substance: CALCITRIOL
     Dosage: 250 MG, UNK
  6. ARANESP [Suspect]
     Active Substance: DARBEPOETIN ALFA
     Indication: RENAL FAILURE
     Dosage: 60 MCG/0.3 ML Q2WK
     Route: 058
     Dates: start: 20141114

REACTIONS (6)
  - Retroperitoneal fibrosis [Unknown]
  - Renal failure [Unknown]
  - Nephrostomy [Unknown]
  - Device occlusion [Unknown]
  - Haematoma [Unknown]
  - Catheter site haemorrhage [Recovered/Resolved]

NARRATIVE: CASE EVENT DATE: 20150711
